FAERS Safety Report 6679897-0 (Version None)
Quarter: 2010Q2

REPORT INFORMATION
  Report Type: 
  Country: None (occurrence: None)
  Receive Date: 20100409
  Receipt Date: 20100406
  Transmission Date: 20101027
  Serious: Yes (Death, Hospitalization)
  Sender: FDA-Public Use
  Company Number: ALL-1-2009-04101

PATIENT
  Age: 58 Year
  Sex: Female
  Weight: 63.5 kg

DRUGS (15)
  1. FOSRENOL [Suspect]
     Indication: HYPERPHOSPHATAEMIA
     Dosage: 1000 MG THREE TIMES DAILY WITH MEALS AND 500 MG TWICE DAILY WITH SNACKS, ORAL
     Route: 048
  2. HYDRAZINE (HYDRAZINE) [Concomitant]
  3. CLONAZEPAM [Concomitant]
  4. RENVELA [Concomitant]
  5. REQUIP [Concomitant]
  6. BUSPAR [Concomitant]
  7. FEXERIL (/00428402/) (CYCLOVENZAPRINE HYDROCHLORIDE) [Concomitant]
  8. AMBIEN [Concomitant]
  9. PROAMATINE [Concomitant]
  10. ACETAMINOPHEN AND HYDROCODONE BITARTRATE [Concomitant]
  11. EMLA /00675501/ (PROMETHAZINE) [Concomitant]
  12. PHENERGAN / 00033001 (PROMETHAZINE) [Concomitant]
  13. LEVOTHROID [Concomitant]
  14. CYMBALTA [Concomitant]
  15. TRAZODONE HCL [Concomitant]

REACTIONS (1)
  - PNEUMONIA [None]
